FAERS Safety Report 13698081 (Version 3)
Quarter: 2017Q3

REPORT INFORMATION
  Report Type: Spontaneous
  Country: US (occurrence: US)
  Receive Date: 20170628
  Receipt Date: 20170721
  Transmission Date: 20171127
  Serious: No
  Sender: FDA-Public Use
  Company Number: US-PFIZER INC-2017279417

PATIENT
  Age: 74 Year
  Sex: Female
  Weight: 53 kg

DRUGS (3)
  1. FASLODEX [Concomitant]
     Active Substance: FULVESTRANT
     Dosage: 500MG IM ONCE EVERY 4 WEEKS
     Dates: start: 20170203, end: 20170428
  2. IBRANCE [Suspect]
     Active Substance: PALBOCICLIB
     Dosage: 100 MG
     Dates: start: 20170428, end: 201705
  3. IBRANCE [Suspect]
     Active Substance: PALBOCICLIB
     Indication: BREAST CANCER METASTATIC
     Dosage: 125 MG, CYCLIC
     Dates: start: 2017

REACTIONS (2)
  - Neoplasm progression [Unknown]
  - White blood cell count decreased [Unknown]
